FAERS Safety Report 20650214 (Version 2)
Quarter: 2022Q1

REPORT INFORMATION
  Report Type: Spontaneous
  Country: US (occurrence: US)
  Receive Date: 20220329
  Receipt Date: 20220331
  Transmission Date: 20220424
  Serious: No
  Sender: FDA-Public Use
  Company Number: US-BAYER-2022A043073

PATIENT
  Age: 49 Year
  Sex: Male
  Weight: 104.3 kg

DRUGS (14)
  1. KERENDIA [Suspect]
     Active Substance: FINERENONE
     Dosage: UNK
     Dates: end: 202201
  2. KERENDIA [Suspect]
     Active Substance: FINERENONE
     Dosage: UNK
     Dates: start: 202202
  3. KORLYM [Suspect]
     Active Substance: MIFEPRISTONE
     Indication: Cushing^s syndrome
     Dosage: 600 MG, QD
     Route: 048
     Dates: start: 20201105
  4. ALBUTEROL SULFATE [Concomitant]
     Active Substance: ALBUTEROL SULFATE
  5. BYSTOLIC [Concomitant]
     Active Substance: NEBIVOLOL HYDROCHLORIDE
  6. CHLORTHALIDONE [Concomitant]
     Active Substance: CHLORTHALIDONE
  7. FENOFIBRATE [Concomitant]
     Active Substance: FENOFIBRATE
  8. FUROSEMIDE [Concomitant]
     Active Substance: FUROSEMIDE
  9. GABAPENTIN [Concomitant]
     Active Substance: GABAPENTIN
  10. HUMULIN R [Concomitant]
     Active Substance: INSULIN HUMAN
  11. METFORMIN [Concomitant]
     Active Substance: METFORMIN HYDROCHLORIDE
  12. NORTRIPTYLINE [Concomitant]
     Active Substance: NORTRIPTYLINE
  13. OLMESARTAN [Concomitant]
     Active Substance: OLMESARTAN
  14. TRULICITY [Concomitant]
     Active Substance: DULAGLUTIDE

REACTIONS (6)
  - Blood potassium increased [Recovered/Resolved]
  - Bone pain [Not Recovered/Not Resolved]
  - Protein urine present [None]
  - Headache [Not Recovered/Not Resolved]
  - Insomnia [Not Recovered/Not Resolved]
  - Blood triglycerides increased [None]

NARRATIVE: CASE EVENT DATE: 20210101
